FAERS Safety Report 7087496 (Version 2)
Quarter: 2012Q4

REPORT INFORMATION
  Report Type: 
  Country: DE (occurrence: DE)
  Receive Date: 20090821
  Receipt Date: 20121106
  Transmission Date: 20130627
  Serious: Yes (Hospitalization)
  Sender: FDA-Public Use
  Company Number: DE-ABBOTT-09P-062-0590535-00

PATIENT
  Age: 42 Year
  Sex: Male
  Weight: 67 kg

DRUGS (9)
  1. KALETRA SOFT GELATIN CAPSULES [Suspect]
     Indication: HIV INFECTION
     Dosage: 2x2, strength: 200mg/245mg
     Route: 048
     Dates: start: 20070917
  2. TRUVADA [Concomitant]
     Indication: HIV INFECTION
     Dosage: 1x1
     Route: 048
     Dates: start: 20070917
  3. ALLOPURINOL [Concomitant]
     Indication: PRODUCT USED FOR UNKNOWN INDICATION
  4. KALINOR [Concomitant]
     Indication: PRODUCT USED FOR UNKNOWN INDICATION
  5. CARBAMAZEPIN [Concomitant]
     Indication: CONVULSION PROPHYLAXIS
     Dates: start: 20090628, end: 20090704
  6. SEMPERA [Concomitant]
     Indication: PRODUCT USED FOR UNKNOWN INDICATION
     Dosage: 100
     Dates: start: 20090211
  7. AVALOX [Concomitant]
     Indication: PRODUCT USED FOR UNKNOWN INDICATION
     Route: 048
     Dates: start: 20091210
  8. ACICLOVIR [Concomitant]
     Indication: PRODUCT USED FOR UNKNOWN INDICATION
     Route: 048
     Dates: start: 20090224, end: 20090504
  9. ITRACONAZOLE [Concomitant]
     Indication: PRODUCT USED FOR UNKNOWN INDICATION
     Dates: start: 20090211

REACTIONS (17)
  - Alcohol withdrawal syndrome [Recovered/Resolved]
  - Panic attack [Unknown]
  - Pruritus [Unknown]
  - Rash pustular [Unknown]
  - Epilepsy [Unknown]
  - Binocular eye movement disorder [Unknown]
  - Eczema [Unknown]
  - Diarrhoea [Unknown]
  - Hypokalaemia [Unknown]
  - Lipase increased [Unknown]
  - Disturbance in attention [Unknown]
  - Inappropriate schedule of drug administration [Unknown]
  - Depression [Unknown]
  - Anxiety [Unknown]
  - Alcoholism [Recovered/Resolved]
  - Disorientation [None]
  - Seborrhoeic dermatitis [None]
